FAERS Safety Report 18364047 (Version 1)
Quarter: 2020Q4

REPORT INFORMATION
  Report Type: Spontaneous
  Country: US (occurrence: US)
  Receive Date: 20201008
  Receipt Date: 20201008
  Transmission Date: 20210114
  Serious: Yes (Death)
  Sender: FDA-Public Use
  Company Number: None

PATIENT
  Age: 61 Year
  Sex: Female

DRUGS (1)
  1. PACLITAXEL MDV 100MG/16.7ML [Suspect]
     Active Substance: PACLITAXEL
     Indication: BREAST CANCER FEMALE
     Dosage: OTHER FREQUENCY:OTHER;?
     Route: 042
     Dates: start: 20200829, end: 20200914

REACTIONS (1)
  - Death [None]

NARRATIVE: CASE EVENT DATE: 20200914
